FAERS Safety Report 24892950 (Version 3)
Quarter: 2025Q2

REPORT INFORMATION
  Report Type: Report from Study
  Country: US (occurrence: US)
  Receive Date: 20250128
  Receipt Date: 20250526
  Transmission Date: 20250716
  Serious: Yes (Hospitalization, Other)
  Sender: ACADIA PHARMACEUTICALS
  Company Number: US-ACADIA PHARMACEUTICALS INC.-ACA-2025-TRF-000417

PATIENT
  Sex: Female

DRUGS (4)
  1. DAYBUE [Suspect]
     Active Substance: TROFINETIDE
     Indication: Rett syndrome
     Dosage: 10 MILLILITER, BID
     Route: 048
  2. DAYBUE [Suspect]
     Active Substance: TROFINETIDE
     Dosage: 17 MILLILITER, BID
     Route: 065
  3. DAYBUE [Suspect]
     Active Substance: TROFINETIDE
     Dosage: 15 MILLILITER, BID
     Route: 065
  4. DAYBUE [Suspect]
     Active Substance: TROFINETIDE
     Dosage: 17 MILLILITER, BID
     Route: 065

REACTIONS (5)
  - Seizure [Recovered/Resolved]
  - Seizure [Not Recovered/Not Resolved]
  - Alopecia [Recovered/Resolved]
  - Diarrhoea [Recovered/Resolved]
  - Underdose [Not Recovered/Not Resolved]
